FAERS Safety Report 11422817 (Version 1)
Quarter: 2015Q3

REPORT INFORMATION
  Report Type: Spontaneous
  Country: US (occurrence: None)
  Receive Date: 20150826
  Receipt Date: 20150826
  Transmission Date: 20151125
  Serious: Yes (Other)
  Sender: FDA-Public Use
  Company Number: None

PATIENT
  Age: 33 Year
  Sex: Male
  Weight: 92.53 kg

DRUGS (4)
  1. CPAP MACHINE [Concomitant]
  2. FOLATE [Concomitant]
     Active Substance: FOLATE SODIUM
  3. VITAMIN D [Concomitant]
     Active Substance: CHOLECALCIFEROL
  4. VIIBRYD [Suspect]
     Active Substance: VILAZODONE HYDROCHLORIDE
     Indication: MAJOR DEPRESSION
     Route: 048
     Dates: start: 20150801, end: 20150825

REACTIONS (12)
  - Joint swelling [None]
  - Abdominal distension [None]
  - Hyperhidrosis [None]
  - Sleep apnoea syndrome [None]
  - Weight increased [None]
  - Aggression [None]
  - Drug effect decreased [None]
  - Depressed mood [None]
  - Condition aggravated [None]
  - Blood glucose decreased [None]
  - Dizziness [None]
  - Agitation [None]

NARRATIVE: CASE EVENT DATE: 20150801
